FAERS Safety Report 7877235-9 (Version None)
Quarter: 2011Q4

REPORT INFORMATION
  Report Type: 
  Country: None (occurrence: None)
  Receive Date: 20111031
  Receipt Date: 20111024
  Transmission Date: 20120403
  Serious: Yes (Other)
  Sender: FDA-Public Use
  Company Number: US-BAYER-2011-103954

PATIENT
  Age: 63 Year
  Sex: Male

DRUGS (1)
  1. ALEVE (CAPLET) [Suspect]
     Indication: MUSCULOSKELETAL PAIN
     Dosage: 220 MG, BID
     Route: 048
     Dates: start: 20110701, end: 20111019

REACTIONS (4)
  - INSOMNIA [None]
  - ABDOMINAL PAIN UPPER [None]
  - APHAGIA [None]
  - DYSPEPSIA [None]
